FAERS Safety Report 8830978 (Version 1)
Quarter: 2012Q4

REPORT INFORMATION
  Report Type: 
  Country: DE (occurrence: DE)
  Receive Date: 20121009
  Receipt Date: 20121009
  Transmission Date: 20130627
  Serious: Yes (Death, Other)
  Sender: FDA-Public Use
  Company Number: DE-PFIZER INC-2012247626

PATIENT
  Age: 27 Year
  Sex: Male

DRUGS (1)
  1. CISPLATIN [Suspect]
     Indication: TONSIL CANCER
     Dosage: 40 mg/m2, UNK
     Route: 065

REACTIONS (9)
  - Disease progression [Fatal]
  - Tonsil cancer [Fatal]
  - Haematotoxicity [Fatal]
  - Pneumonia [Unknown]
  - Acute respiratory distress syndrome [Unknown]
  - Pancytopenia [Recovered/Resolved]
  - Pleural effusion [Unknown]
  - Diarrhoea [Unknown]
  - Oral candidiasis [Unknown]
